FAERS Safety Report 5197110-0 (Version None)
Quarter: 2006Q4

REPORT INFORMATION
  Report Type: 
  Country: None (occurrence: None)
  Receive Date: 20061220
  Receipt Date: 20061205
  Transmission Date: 20070319
  Serious: Yes (Life-Threatening)
  Sender: FDA-Public Use
  Company Number: 2006BH014982

PATIENT
  Age: 55 Year
  Sex: Male

DRUGS (4)
  1. GAMMAGARD [Suspect]
     Indication: POLYMYOSITIS
     Dosage: 1000 MG/KG; UNK; IV
     Route: 042
  2. METHOTREXATE [Concomitant]
  3. AZATHIOPRINE [Concomitant]
  4. CYCLOPHOSPHAMIDE [Concomitant]

REACTIONS (2)
  - INTERNATIONAL NORMALISED RATIO INCREASED [None]
  - VENA CAVA THROMBOSIS [None]
